FAERS Safety Report 4766400-5 (Version None)
Quarter: 2005Q3

REPORT INFORMATION
  Report Type: 
  Country: None (occurrence: None)
  Receive Date: 20050912
  Receipt Date: 20050905
  Transmission Date: 20060218
  Serious: Yes (Death, Hospitalization)
  Sender: FDA-Public Use
  Company Number: FR-JNJFOC-20050703296

PATIENT
  Age: 76 Year
  Sex: Male

DRUGS (8)
  1. DURAGESIC-100 [Suspect]
     Route: 062
  2. DURAGESIC-100 [Suspect]
     Indication: CANCER PAIN
     Route: 062
  3. DURAGESIC-100 [Concomitant]
     Route: 062
  4. DURAGESIC-100 [Concomitant]
     Route: 062
  5. DURAGESIC-100 [Concomitant]
     Route: 062
  6. DURAGESIC-100 [Concomitant]
     Route: 062
  7. MORPHINE SULFATE [Concomitant]
     Route: 065
  8. CHEMOTHERAPY [Concomitant]
     Route: 065

REACTIONS (2)
  - DRUG INEFFECTIVE [None]
  - NEOPLASM MALIGNANT [None]
